FAERS Safety Report 19926892 (Version 12)
Quarter: 2022Q1

REPORT INFORMATION
  Report Type: Report from Study
  Country: BR (occurrence: BR)
  Receive Date: 20211006
  Receipt Date: 20220329
  Transmission Date: 20220424
  Serious: Yes (Death, Hospitalization, Other)
  Sender: FDA-Public Use
  Company Number: BR-BRISTOL-MYERS SQUIBB COMPANY-BMS-2021-102039

PATIENT
  Age: 75 Year
  Sex: Male
  Weight: 86 kg

DRUGS (53)
  1. DOCETAXEL [Suspect]
     Active Substance: DOCETAXEL
     Indication: Prostate cancer
     Route: 065
     Dates: start: 20210329, end: 20210825
  2. PREDNISONE [Suspect]
     Active Substance: PREDNISONE
     Indication: Prostate cancer
     Route: 065
     Dates: start: 20210329, end: 20210824
  3. NIVOLUMAB [Suspect]
     Active Substance: NIVOLUMAB
     Indication: Prostate cancer
     Route: 042
     Dates: start: 20210329, end: 20210825
  4. HEPARIN [Concomitant]
     Active Substance: HEPARIN SODIUM
     Indication: Product used for unknown indication
     Dosage: 1 DOSAGE FORM= 5000 UNIT NOS
     Route: 042
     Dates: start: 20211101, end: 20211101
  5. HEPARIN [Concomitant]
     Active Substance: HEPARIN SODIUM
     Dosage: 1 DOSAGE FORM= 5000 UNIT NOS
     Route: 042
     Dates: start: 20211023, end: 20211023
  6. LACTULOSE [Concomitant]
     Active Substance: LACTULOSE
     Indication: Product used for unknown indication
     Route: 051
     Dates: start: 20211101, end: 20211102
  7. LACTULOSE [Concomitant]
     Active Substance: LACTULOSE
     Route: 051
     Dates: start: 20211103, end: 20211106
  8. LACTULOSE [Concomitant]
     Active Substance: LACTULOSE
     Route: 051
     Dates: start: 20211021, end: 20211024
  9. MEROPENEM [Concomitant]
     Active Substance: MEROPENEM
     Indication: Febrile neutropenia
     Route: 042
     Dates: start: 20211103, end: 20211112
  10. MEROPENEM [Concomitant]
     Active Substance: MEROPENEM
     Route: 042
     Dates: start: 20211013, end: 20211027
  11. MEROPENEM [Concomitant]
     Active Substance: MEROPENEM
     Route: 042
     Dates: start: 20210908, end: 20210915
  12. MEROPENEM [Concomitant]
     Active Substance: MEROPENEM
     Route: 042
     Dates: start: 20211001, end: 20211003
  13. POLYMYXIN B SULFATE [Concomitant]
     Active Substance: POLYMYXIN B SULFATE
     Indication: Product used for unknown indication
     Route: 042
     Dates: start: 20211103, end: 20211113
  14. VANCOMYCIN [Concomitant]
     Active Substance: VANCOMYCIN
     Indication: Febrile neutropenia
     Route: 042
     Dates: start: 20211104, end: 20211108
  15. VANCOMYCIN [Concomitant]
     Active Substance: VANCOMYCIN
     Route: 042
     Dates: start: 20210908, end: 20210915
  16. PANTOPRAZOLE [Concomitant]
     Active Substance: PANTOPRAZOLE
     Indication: Product used for unknown indication
     Route: 042
     Dates: start: 20211104, end: 20211104
  17. ENOXAPARIN SODIUM [Concomitant]
     Active Substance: ENOXAPARIN SODIUM
     Indication: Febrile neutropenia
     Route: 058
     Dates: start: 20211104, end: 20211104
  18. ENOXAPARIN SODIUM [Concomitant]
     Active Substance: ENOXAPARIN SODIUM
     Route: 058
     Dates: start: 20211021, end: 20211021
  19. ENOXAPARIN SODIUM [Concomitant]
     Active Substance: ENOXAPARIN SODIUM
     Route: 058
     Dates: start: 20211023, end: 20211023
  20. ENOXAPARIN SODIUM [Concomitant]
     Active Substance: ENOXAPARIN SODIUM
     Route: 058
     Dates: start: 20210905, end: 20210915
  21. THIAMINE [Concomitant]
     Active Substance: THIAMINE
     Indication: Product used for unknown indication
     Route: 051
     Dates: start: 20211011, end: 20211115
  22. ELECTROLYTES NOS\POLYETHYLENE GLYCOL 3350 [Concomitant]
     Active Substance: ELECTROLYTES NOS\POLYETHYLENE GLYCOL 3350
     Indication: Product used for unknown indication
     Route: 051
     Dates: start: 20211022, end: 20211024
  23. ATROPINE [Concomitant]
     Active Substance: ATROPINE
     Indication: Product used for unknown indication
     Dosage: 1 DOSAGE FORM= 0.5 UNIT NOS
     Route: 051
     Dates: start: 20211024, end: 20211031
  24. MORPHINE [Concomitant]
     Active Substance: MORPHINE
     Indication: Product used for unknown indication
     Route: 042
     Dates: start: 20211028, end: 20211028
  25. TRAMADOL [Concomitant]
     Active Substance: TRAMADOL
     Indication: Product used for unknown indication
     Route: 042
     Dates: start: 20211029, end: 20211116
  26. ACETAMINOPHEN [Concomitant]
     Active Substance: ACETAMINOPHEN
     Indication: Product used for unknown indication
     Route: 048
     Dates: start: 20210512
  27. ACETAMINOPHEN [Concomitant]
     Active Substance: ACETAMINOPHEN
     Indication: Adverse event
  28. DIPHENHYDRAMINE [Concomitant]
     Active Substance: DIPHENHYDRAMINE
     Indication: Prophylaxis
     Route: 042
     Dates: start: 20210510
  29. ONDANSETRON [Concomitant]
     Active Substance: ONDANSETRON
     Indication: Product used for unknown indication
     Route: 048
     Dates: start: 20210712
  30. METICORTEN [Concomitant]
     Active Substance: PREDNISONE
     Indication: Febrile neutropenia
     Route: 048
     Dates: start: 20210904, end: 20210915
  31. METICORTEN [Concomitant]
     Active Substance: PREDNISONE
     Route: 051
     Dates: start: 20211004, end: 20211116
  32. METICORTEN [Concomitant]
     Active Substance: PREDNISONE
     Route: 051
     Dates: start: 20211018, end: 20211031
  33. FILGRASTIM [Concomitant]
     Active Substance: FILGRASTIM
     Indication: Febrile neutropenia
     Dosage: 1 DOSAGE FORM= 300 UNIT NOS
     Route: 058
     Dates: start: 20210904, end: 20210911
  34. INVESTIGATIONAL PRODUCT [Concomitant]
     Active Substance: INVESTIGATIONAL PRODUCT
     Indication: Prophylaxis
     Dosage: UNK
     Route: 030
     Dates: start: 202103
  35. INVESTIGATIONAL PRODUCT [Concomitant]
     Active Substance: INVESTIGATIONAL PRODUCT
     Dosage: UNK
     Route: 030
     Dates: start: 20210426
  36. FEXOFENADINE [Concomitant]
     Active Substance: FEXOFENADINE HYDROCHLORIDE
     Indication: Product used for unknown indication
     Route: 051
     Dates: start: 20211026, end: 20211106
  37. FEXOFENADINE [Concomitant]
     Active Substance: FEXOFENADINE HYDROCHLORIDE
     Route: 051
     Dates: start: 20211022, end: 20211023
  38. FEXOFENADINE [Concomitant]
     Active Substance: FEXOFENADINE HYDROCHLORIDE
     Route: 051
     Dates: start: 20211026, end: 20211029
  39. FEXOFENADINE [Concomitant]
     Active Substance: FEXOFENADINE HYDROCHLORIDE
     Route: 051
     Dates: start: 20211029, end: 20211030
  40. DIPYRONE [Concomitant]
     Active Substance: DIPYRONE
     Indication: Product used for unknown indication
     Route: 042
     Dates: start: 20211104, end: 20211105
  41. DIPYRONE [Concomitant]
     Active Substance: DIPYRONE
     Route: 042
     Dates: start: 20211020, end: 20211027
  42. KEPPRA [Concomitant]
     Active Substance: LEVETIRACETAM
     Indication: Product used for unknown indication
     Route: 042
     Dates: start: 20210924, end: 20211115
  43. SYNTHROID [Concomitant]
     Active Substance: LEVOTHYROXINE SODIUM
     Indication: Product used for unknown indication
     Dosage: 1 DOSAGE FORM= 50 UNIT NOS
     Route: 051
     Dates: start: 20211007, end: 20211031
  44. FLUDROCORTISONA [Concomitant]
     Indication: Product used for unknown indication
     Route: 051
     Dates: start: 20211015, end: 20211116
  45. LEVAQUIN [Concomitant]
     Active Substance: LEVOFLOXACIN
     Indication: Product used for unknown indication
     Route: 042
     Dates: start: 20211018, end: 20211026
  46. NOREPINEPHRINE [Concomitant]
     Active Substance: NOREPINEPHRINE
     Indication: Product used for unknown indication
     Dosage: 1 DOSAGE FORM= 32 UNIT NOS
     Route: 042
     Dates: start: 20211019, end: 20211021
  47. NOREPINEPHRINE [Concomitant]
     Active Substance: NOREPINEPHRINE
     Dosage: 1 DOSAGE FORM= 32 UNIT NOS
     Route: 042
     Dates: start: 20211019, end: 20211025
  48. NOREPINEPHRINE [Concomitant]
     Active Substance: NOREPINEPHRINE
     Dosage: 1 DOSAGE FORM= 32 UNIT NOS
     Route: 042
     Dates: start: 20211101, end: 20211105
  49. LASIX [Concomitant]
     Active Substance: FUROSEMIDE
     Indication: Product used for unknown indication
     Route: 042
     Dates: start: 20211019, end: 20211021
  50. POTASSIUM PHOSPHATE, DIBASIC [Concomitant]
     Active Substance: POTASSIUM PHOSPHATE, DIBASIC
     Indication: Product used for unknown indication
     Dosage: 1 DOSAGE FORM= 2 UNITS NOS
     Route: 042
     Dates: start: 20211028, end: 20211028
  51. POTASSIUM PHOSPHATE, DIBASIC [Concomitant]
     Active Substance: POTASSIUM PHOSPHATE, DIBASIC
     Dosage: 1 DOSAGE FORM= 2 UNITS NOS
     Route: 042
     Dates: start: 20211025, end: 20211025
  52. OMEPRAZOLE MAGNESIUM [Concomitant]
     Active Substance: OMEPRAZOLE MAGNESIUM
     Indication: Product used for unknown indication
     Route: 051
     Dates: start: 20211027, end: 20211028
  53. OMEPRAZOLE MAGNESIUM [Concomitant]
     Active Substance: OMEPRAZOLE MAGNESIUM
     Route: 051
     Dates: start: 20211030, end: 20211103

REACTIONS (2)
  - Septic shock [Recovering/Resolving]
  - Guillain-Barre syndrome [Fatal]

NARRATIVE: CASE EVENT DATE: 20210923
